FAERS Safety Report 5095911-0 (Version None)
Quarter: 2006Q3

REPORT INFORMATION
  Report Type: 
  Country: None (occurrence: None)
  Receive Date: 20060731
  Receipt Date: 20060419
  Transmission Date: 20061208
  Serious: No
  Sender: FDA-Public Use
  Company Number: 2006PV012336

PATIENT
  Age: 64 Year
  Sex: Male
  Weight: 98.4306 kg

DRUGS (11)
  1. BYETTA [Suspect]
     Indication: DIABETES MELLITUS NON-INSULIN-DEPENDENT
     Dosage: SEE IMAGE
     Route: 058
     Dates: start: 20060301, end: 20060401
  2. BYETTA [Suspect]
     Indication: DIABETES MELLITUS NON-INSULIN-DEPENDENT
     Dosage: SEE IMAGE
     Route: 058
     Dates: start: 20060401
  3. ACTOS /USA/ [Concomitant]
  4. WARFARIN SODIUM [Concomitant]
  5. LASIX [Concomitant]
  6. PREVACID [Concomitant]
  7. ATENOLOL [Concomitant]
  8. ZETIA [Concomitant]
  9. ALLOPURINOL [Concomitant]
  10. POTASSIUM [Concomitant]
  11. MAGNESIUM [Concomitant]

REACTIONS (7)
  - BLOOD GLUCOSE INCREASED [None]
  - DECREASED APPETITE [None]
  - MEDICATION ERROR [None]
  - MUSCLE SPASMS [None]
  - NAUSEA [None]
  - VOMITING [None]
  - WEIGHT DECREASED [None]
